FAERS Safety Report 15326520 (Version 1)
Quarter: 2018Q3

REPORT INFORMATION
  Report Type: Spontaneous
  Country: US (occurrence: US)
  Receive Date: 20180828
  Receipt Date: 20180828
  Transmission Date: 20181010
  Serious: Yes (Other)
  Sender: FDA-Public Use
  Company Number: US-ALLERGAN-1841508US

PATIENT

DRUGS (1)
  1. PROGESTERONE UNK [Suspect]
     Active Substance: PROGESTERONE
     Indication: EXPOSURE DURING PREGNANCY
     Dosage: UNK
     Route: 064

REACTIONS (1)
  - Sepsis neonatal [Unknown]
